FAERS Safety Report 9365136 (Version 1)
Quarter: 2013Q2

REPORT INFORMATION
  Report Type: Spontaneous
  Country: SE (occurrence: SE)
  Receive Date: 20130624
  Receipt Date: 20130624
  Transmission Date: 20140414
  Serious: Yes (Hospitalization, Disabling)
  Sender: FDA-Public Use
  Company Number: PHHY2013SE063257

PATIENT
  Age: 21 Year
  Sex: Male

DRUGS (2)
  1. FLUOXETINE SANDOZ [Suspect]
     Dosage: 20 MG, QD
     Route: 048
     Dates: start: 20120309, end: 20120705
  2. LEVAXIN [Concomitant]
     Indication: HYPOTHYROIDISM
     Dosage: 25 UG, UNK

REACTIONS (2)
  - Temperature intolerance [Not Recovered/Not Resolved]
  - Hyperhidrosis [Not Recovered/Not Resolved]
